FAERS Safety Report 5483522-4 (Version None)
Quarter: 2007Q4

REPORT INFORMATION
  Report Type: 
  Country: None (occurrence: None)
  Receive Date: 20071009
  Receipt Date: 20071003
  Transmission Date: 20080405
  Serious: Yes (Death)
  Sender: FDA-Public Use
  Company Number: E3810-00831-SPO-US

PATIENT
  Age: 85 Year
  Sex: Female

DRUGS (1)
  1. ACIPHEX [Suspect]
     Indication: GASTROOESOPHAGEAL REFLUX DISEASE
     Dosage: 20 MG, 1 IN 1 D, ORAL
     Route: 048

REACTIONS (1)
  - MYOCARDIAL INFARCTION [None]
